FAERS Safety Report 6430270-X (Version None)
Quarter: 2009Q4

REPORT INFORMATION
  Report Type: 
  Country: None (occurrence: None)
  Receive Date: 20091104
  Receipt Date: 20091104
  Transmission Date: 20100525
  Serious: Yes (Hospitalization)
  Sender: FDA-Public Use
  Company Number: None

PATIENT
  Age: 68 Year
  Sex: Female

DRUGS (7)
  1. ALBUTEROL [Suspect]
     Indication: CHRONIC OBSTRUCTIVE PULMONARY DISEASE
     Dosage: 2.5MG Q6H PO
     Route: 048
     Dates: start: 20090928, end: 20090929
  2. PREDNISONE [Concomitant]
  3. SERTRALINE HCL [Concomitant]
  4. QUETIAPINE [Concomitant]
  5. IPRATROPIUM [Concomitant]
  6. DOXYCYCINE [Concomitant]
  7. CALCIUM CARBONATE/VITAMIN D [Concomitant]

REACTIONS (8)
  - BLOOD PRESSURE INCREASED [None]
  - CHRONIC OBSTRUCTIVE PULMONARY DISEASE [None]
  - CONDITION AGGRAVATED [None]
  - DYSPNOEA [None]
  - FEELING JITTERY [None]
  - OXYGEN SATURATION DECREASED [None]
  - RESPIRATORY RATE INCREASED [None]
  - TACHYCARDIA [None]
